FAERS Safety Report 7563481-0 (Version None)
Quarter: 2011Q2

REPORT INFORMATION
  Report Type: 
  Country: None (occurrence: None)
  Receive Date: 20110622
  Receipt Date: 20110608
  Transmission Date: 20111010
  Serious: Yes (Life-Threatening, Other)
  Sender: FDA-Public Use
  Company Number: IT-PFIZER INC-2011136686

PATIENT

DRUGS (1)
  1. SUTENT [Suspect]
     Indication: RENAL CANCER
     Dosage: 50 MG, 1X/DAY
     Route: 048
     Dates: start: 20081002, end: 20081004

REACTIONS (4)
  - HYPERTENSION [None]
  - RETINOPATHY HYPERTENSIVE [None]
  - HYPERTENSIVE HEART DISEASE [None]
  - CAROTID ARTERIOSCLEROSIS [None]
